FAERS Safety Report 5754049-7 (Version None)
Quarter: 2008Q2

REPORT INFORMATION
  Report Type: 
  Country: None (occurrence: None)
  Receive Date: 20080530
  Receipt Date: 20080521
  Transmission Date: 20081010
  Serious: Yes (Hospitalization)
  Sender: FDA-Public Use
  Company Number: PHHO2008BE06748

PATIENT
  Sex: Female
  Weight: 73 kg

DRUGS (3)
  1. MYCOPHENOLIC ACID ERL+ [Suspect]
     Indication: RENAL TRANSPLANT
     Dosage: 1440MG  DAY
     Route: 048
     Dates: start: 20070126
  2. MYCOPHENOLIC ACID ERL+ [Suspect]
     Dosage: 360 MG, BID
     Route: 048
  3. NEORAL [Suspect]
     Indication: RENAL TRANSPLANT
     Dosage: UNK
     Dates: start: 20070126

REACTIONS (8)
  - C-REACTIVE PROTEIN INCREASED [None]
  - DYSPNOEA [None]
  - HAEMOPHILUS INFECTION [None]
  - ORAL CANDIDIASIS [None]
  - PHARYNGITIS [None]
  - PNEUMONIA PNEUMOCOCCAL [None]
  - PRODUCTIVE COUGH [None]
  - RESPIRATORY DISTRESS [None]
